FAERS Safety Report 16026009 (Version 1)
Quarter: 2019Q1

REPORT INFORMATION
  Report Type: Report from Study
  Country: US (occurrence: US)
  Receive Date: 20190302
  Receipt Date: 20190302
  Transmission Date: 20190418
  Serious: Yes (Hospitalization)
  Sender: FDA-Public Use
  Company Number: US-BAYER-2019-028460

PATIENT
  Age: 55 Year
  Sex: Female

DRUGS (3)
  1. STIVARGA [Suspect]
     Active Substance: REGORAFENIB
     Indication: COLORECTAL CANCER
     Dosage: 80 MG, DAILY WITH A LOW-FAT MEAL
     Route: 048
     Dates: start: 20181026, end: 20181109
  2. STIVARGA [Suspect]
     Active Substance: REGORAFENIB
     Indication: COLORECTAL CANCER
     Dosage: 40 MG DAILY
     Route: 048
     Dates: start: 20181130, end: 20181221
  3. STIVARGA [Suspect]
     Active Substance: REGORAFENIB
     Indication: COLORECTAL CANCER
     Dosage: 40 MG, QD (1 TABLET PO QD AFTER LOW-FAT MEAL)
     Route: 048
     Dates: start: 20190212

REACTIONS (12)
  - Off label use [None]
  - Incorrect product administration duration [None]
  - Palmar-plantar erythrodysaesthesia syndrome [Recovered/Resolved]
  - Pain [Recovered/Resolved]
  - Product supply issue [None]
  - Erythema [Recovered/Resolved]
  - Blood pressure increased [Not Recovered/Not Resolved]
  - Neck pain [Recovered/Resolved]
  - Heart rate increased [None]
  - Blood pressure increased [Unknown]
  - Skin exfoliation [Recovered/Resolved]
  - Chest pain [Recovered/Resolved]

NARRATIVE: CASE EVENT DATE: 201811
